FAERS Safety Report 20701014 (Version 1)
Quarter: 2022Q2

REPORT INFORMATION
  Report Type: Spontaneous
  Country: US (occurrence: None)
  Receive Date: 20220411
  Receipt Date: 20220411
  Transmission Date: 20220721
  Serious: No
  Sender: FDA-Public Use
  Company Number: None

PATIENT
  Age: 37 Year
  Sex: Female
  Weight: 56.7 kg

DRUGS (6)
  1. PAXLOVID [Suspect]
     Active Substance: NIRMATRELVIR\RITONAVIR
     Indication: COVID-19
     Route: 048
     Dates: start: 20220407
  2. VITAMIN C [Concomitant]
     Active Substance: ASCORBIC ACID
  3. IRON BISGLYCINATE [Concomitant]
  4. VITAMIN D3 [Concomitant]
     Active Substance: CHOLECALCIFEROL
  5. MAGNESIUM [Concomitant]
     Active Substance: MAGNESIUM
  6. VITAMINS [Concomitant]
     Active Substance: VITAMINS

REACTIONS (10)
  - Dysgeusia [None]
  - Nausea [None]
  - Abdominal pain upper [None]
  - Vomiting [None]
  - Diarrhoea [None]
  - Hyperhidrosis [None]
  - Feeling of body temperature change [None]
  - Pain [None]
  - Symptom recurrence [None]
  - Drug intolerance [None]

NARRATIVE: CASE EVENT DATE: 20220407
